FAERS Safety Report 17490215 (Version 1)
Quarter: 2020Q1

REPORT INFORMATION
  Report Type: Spontaneous
  Country: US (occurrence: US)
  Receive Date: 20200303
  Receipt Date: 20200303
  Transmission Date: 20200409
  Serious: No
  Sender: FDA-Public Use
  Company Number: US-AKORN PHARMACEUTICALS-2019AKN02449

PATIENT
  Age: 23 Year
  Sex: Female
  Weight: 59.86 kg

DRUGS (4)
  1. MYORISAN [Suspect]
     Active Substance: ISOTRETINOIN
     Indication: ACNE
     Dosage: 30 MG, 1X/DAY OR EVERY OTHER DAY
     Route: 048
     Dates: start: 20191018, end: 20191108
  2. MYORISAN [Suspect]
     Active Substance: ISOTRETINOIN
     Indication: ACNE
     Dosage: UNK
     Dates: start: 20190611, end: 201910
  3. MYORISAN [Suspect]
     Active Substance: ISOTRETINOIN
     Dosage: 30 MG, 1X/DAY OR EVERY OTHER DAYUNK
     Dates: start: 20191018, end: 20191108
  4. ORAL CONTRACEPTION (UNSPECIFIED) [Concomitant]

REACTIONS (4)
  - Off label use [Recovered/Resolved]
  - Abdominal pain upper [Recovering/Resolving]
  - Back pain [Recovering/Resolving]
  - Myalgia [Recovering/Resolving]

NARRATIVE: CASE EVENT DATE: 2019
